FAERS Safety Report 4860872-3 (Version None)
Quarter: 2005Q4

REPORT INFORMATION
  Report Type: 
  Country: None (occurrence: None)
  Receive Date: 20051220
  Receipt Date: 20051209
  Transmission Date: 20060501
  Serious: Yes (Other)
  Sender: FDA-Public Use
  Company Number: CA-BRISTOL-MYERS SQUIBB COMPANY-13217823

PATIENT
  Age: 71 Year
  Sex: Male

DRUGS (5)
  1. TEQUIN [Suspect]
     Route: 048
  2. FUROSEMIDE [Concomitant]
  3. IRBESARTAN [Concomitant]
  4. OXAZEPAM [Concomitant]
  5. VERAPAMIL [Concomitant]

REACTIONS (2)
  - BLOOD GLUCOSE INCREASED [None]
  - MALAISE [None]
